FAERS Safety Report 9829329 (Version 4)
Quarter: 2015Q1

REPORT INFORMATION
  Report Type: Spontaneous
  Country: AR (occurrence: AR)
  Receive Date: 20140120
  Receipt Date: 20150204
  Transmission Date: 20150721
  Serious: Yes (Other)
  Sender: FDA-Public Use
  Company Number: AR-AMGEN-ARGSP2014003270

PATIENT
  Age: 80 Year
  Sex: Female

DRUGS (4)
  1. EMOTIVAL                           /00273201/ [Concomitant]
     Dosage: UNK
  2. GLIOTEN                            /00574902/ [Concomitant]
     Dosage: UNK
  3. DIUREX                             /00206601/ [Concomitant]
     Dosage: UNK
  4. ENBREL [Suspect]
     Active Substance: ETANERCEPT
     Indication: PSORIATIC ARTHROPATHY
     Dosage: 50 MG, WEEKLY
     Route: 065
     Dates: start: 20080311

REACTIONS (10)
  - Fear [Unknown]
  - Gait disturbance [Not Recovered/Not Resolved]
  - Wrist fracture [Recovered/Resolved]
  - Fall [Unknown]
  - Joint injury [Recovered/Resolved]
  - Maculopathy [Not Recovered/Not Resolved]
  - Photosensitivity reaction [Not Recovered/Not Resolved]
  - Hand fracture [Not Recovered/Not Resolved]
  - Blood pressure increased [Recovered/Resolved]
  - Emotional disorder [Unknown]

NARRATIVE: CASE EVENT DATE: 2013
